FAERS Safety Report 9571000 (Version 1)
Quarter: 2013Q3

REPORT INFORMATION
  Report Type: Spontaneous
  Country: US (occurrence: None)
  Receive Date: 20130927
  Receipt Date: 20130927
  Transmission Date: 20140515
  Serious: Yes (Hospitalization)
  Sender: FDA-Public Use
  Company Number: 2013P1019396

PATIENT
  Age: 30 Year
  Sex: Female

DRUGS (6)
  1. LAMOTRIGINE [Suspect]
     Route: 048
     Dates: start: 20130903
  2. CYCLOBENZAPRINE [Concomitant]
  3. FLUOXETINE [Concomitant]
  4. NARATRIPTAN [Concomitant]
  5. DEXMATHASONE [Concomitant]
  6. METOCLOPRAMIDE [Concomitant]

REACTIONS (2)
  - Convulsion [None]
  - Product substitution issue [None]
